FAERS Safety Report 13035897 (Version 4)
Quarter: 2020Q2

REPORT INFORMATION
  Report Type: Spontaneous
  Country: US (occurrence: US)
  Receive Date: 20161216
  Receipt Date: 20200610
  Transmission Date: 20200713
  Serious: No
  Sender: FDA-Public Use
  Company Number: US-PFIZER INC-2016582516

PATIENT
  Age: 60 Year
  Sex: Female

DRUGS (1)
  1. PREMARIN [Suspect]
     Active Substance: ESTROGENS, CONJUGATED
     Dosage: UNK
     Dates: start: 1988

REACTIONS (5)
  - Hot flush [Not Recovered/Not Resolved]
  - Blood cholesterol increased [Unknown]
  - Memory impairment [Unknown]
  - Expired product administered [Unknown]
  - Feeling of body temperature change [Not Recovered/Not Resolved]
